FAERS Safety Report 16083252 (Version 1)
Quarter: 2019Q1

REPORT INFORMATION
  Report Type: Spontaneous
  Country: GB (occurrence: GB)
  Receive Date: 20190318
  Receipt Date: 20190318
  Transmission Date: 20190418
  Serious: Yes (Death, Hospitalization, Other)
  Sender: FDA-Public Use
  Company Number: GB-SA-2019SA072172

PATIENT
  Age: 76 Year
  Sex: Female
  Weight: 79 kg

DRUGS (10)
  1. OXYCODONE HYDROCHLORIDE. [Concomitant]
     Active Substance: OXYCODONE HYDROCHLORIDE
  2. IRBESARTAN HYDROCHLORIDE [Concomitant]
     Active Substance: IRBESARTAN
  3. FEBUXOSTAT. [Suspect]
     Active Substance: FEBUXOSTAT
     Indication: GOUT
     Dosage: 40 MG, QD
     Dates: start: 20180201, end: 201805
  4. FUROSEMIDE. [Concomitant]
     Active Substance: FUROSEMIDE
  5. ALIROCUMAB [Suspect]
     Active Substance: ALIROCUMAB
     Indication: TYPE IIA HYPERLIPIDAEMIA
     Dosage: 75 MG, QOW
     Route: 058
     Dates: start: 20180206, end: 20180730
  6. SPIRONOLACTONE. [Concomitant]
     Active Substance: SPIRONOLACTONE
  7. FEBUXOSTAT. [Suspect]
     Active Substance: FEBUXOSTAT
     Dosage: 80 MG
     Route: 048
     Dates: start: 20180618, end: 20180720
  8. PREDNISOLONE. [Suspect]
     Active Substance: PREDNISOLONE
     Indication: GOUT
     Dosage: UNK
     Route: 048
     Dates: start: 20180618, end: 20180720
  9. BISOPROLOL FUMARATE. [Concomitant]
     Active Substance: BISOPROLOL FUMARATE
  10. COLECALCIFEROL [Concomitant]
     Active Substance: CHOLECALCIFEROL

REACTIONS (4)
  - Cardiogenic shock [Fatal]
  - Acidosis [Fatal]
  - Acute kidney injury [Fatal]
  - Back pain [Fatal]

NARRATIVE: CASE EVENT DATE: 20180604
